FAERS Safety Report 11113042 (Version 1)
Quarter: 2015Q2

REPORT INFORMATION
  Report Type: Spontaneous
  Country: BR (occurrence: BR)
  Receive Date: 20150514
  Receipt Date: 20150514
  Transmission Date: 20150821
  Serious: Yes (Hospitalization, Disabling, Other)
  Sender: FDA-Public Use
  Company Number: BR-ABBVIE-15P-020-1388458-00

PATIENT
  Sex: Male
  Weight: 62 kg

DRUGS (5)
  1. KALETRA [Suspect]
     Active Substance: LOPINAVIR\RITONAVIR
     Indication: HIV TEST POSITIVE
     Dosage: 100/25MG
     Route: 048
     Dates: start: 200306
  2. KALETRA [Suspect]
     Active Substance: LOPINAVIR\RITONAVIR
     Route: 048
     Dates: start: 2013
  3. ZIDOVUDINE. [Concomitant]
     Active Substance: ZIDOVUDINE
     Indication: HIV INFECTION
  4. LAMIVUDINE. [Concomitant]
     Active Substance: LAMIVUDINE
     Indication: HIV INFECTION
  5. RITONAVIR. [Suspect]
     Active Substance: RITONAVIR
     Indication: HIV INFECTION
     Route: 065

REACTIONS (9)
  - Alcoholism [Unknown]
  - Amnesia [Unknown]
  - Accident [Recovering/Resolving]
  - Tibia fracture [Recovering/Resolving]
  - CD4 lymphocytes decreased [Recovered/Resolved]
  - Viral load increased [Recovered/Resolved]
  - Pain [Unknown]
  - Peripheral swelling [Recovering/Resolving]
  - Accident [Unknown]

NARRATIVE: CASE EVENT DATE: 2012
